FAERS Safety Report 12659742 (Version 1)
Quarter: 2016Q3

REPORT INFORMATION
  Report Type: Report from Study
  Country: BE (occurrence: BE)
  Receive Date: 20160817
  Receipt Date: 20160817
  Transmission Date: 20161109
  Serious: Yes (Hospitalization)
  Sender: FDA-Public Use
  Company Number: PHHY2016BE110616

PATIENT
  Sex: Male

DRUGS (1)
  1. SANDOSTATIN LAR DEPOT [Suspect]
     Active Substance: OCTREOTIDE ACETATE
     Indication: ACROMEGALY
     Dosage: 30 MG,  EVERY THREE WEEKS
     Route: 030

REACTIONS (2)
  - Inappropriate schedule of drug administration [Unknown]
  - Device related infection [Recovered/Resolved]

NARRATIVE: CASE EVENT DATE: 2016
